FAERS Safety Report 7540273-X (Version None)
Quarter: 2011Q2

REPORT INFORMATION
  Report Type: 
  Country: None (occurrence: None)
  Receive Date: 20110610
  Receipt Date: 20110530
  Transmission Date: 20111010
  Serious: Yes (Hospitalization)
  Sender: FDA-Public Use
  Company Number: PHHY2011NL47687

PATIENT
  Sex: Male

DRUGS (22)
  1. PREDNISOLONE [Concomitant]
  2. LACTULOSE [Concomitant]
  3. SERETIDE [Concomitant]
  4. METFORMIN HCL [Concomitant]
  5. METOCLOPRAMIDE [Concomitant]
  6. SPIROLACTON [Concomitant]
  7. LANTUS [Concomitant]
  8. SUCRALFATE [Concomitant]
  9. ZOMETA [Suspect]
     Dosage: 4 MG/5 ML PER 28 DAYS
     Route: 042
     Dates: start: 20110505
  10. FINASTERIDE [Concomitant]
  11. ZOMETA [Suspect]
     Indication: PROSTATE CANCER METASTATIC
     Dosage: 4 MG/5 ML PER 28 DAYS
     Route: 042
     Dates: start: 20090526
  12. AERIUS [Concomitant]
  13. ACENOCOUMAROL [Concomitant]
  14. ALPRAZOLAM [Concomitant]
  15. NOVICOLON [Concomitant]
  16. FENTANYL [Concomitant]
  17. ZOMETA [Suspect]
     Dosage: 4 MG/5 ML PER 28 DAYS
     Route: 042
     Dates: start: 20110404
  18. ZOLADEX [Concomitant]
  19. ACETAMINOPHEN [Concomitant]
  20. NEXIUM [Concomitant]
  21. ORAMORPH SR [Concomitant]
  22. MORPHINE [Concomitant]

REACTIONS (2)
  - PAIN [None]
  - BACK PAIN [None]
